FAERS Safety Report 5221756-4 (Version None)
Quarter: 2007Q1

REPORT INFORMATION
  Report Type: 
  Country: None (occurrence: None)
  Receive Date: 20070129
  Receipt Date: 20070118
  Transmission Date: 20070707
  Serious: Yes (Hospitalization)
  Sender: FDA-Public Use
  Company Number: FR-JNJFOC-20070104235

PATIENT
  Age: 33 Year
  Sex: Female

DRUGS (3)
  1. RISPERIDONE [Suspect]
     Dosage: GRADUALLY DISCONTINUED WITHIN 2 WEEKS
     Route: 048
  2. RISPERIDONE [Suspect]
     Dosage: TITRATED UP TO 12 MG DAILY
     Route: 048
  3. RISPERIDONE [Suspect]
     Indication: SCHIZOPHRENIA, PARANOID TYPE
     Dosage: TITRATED UP TO 4 MG DAILY
     Route: 048

REACTIONS (2)
  - HALLUCINATION [None]
  - NEUTROPENIA [None]
